FAERS Safety Report 7116205-5 (Version None)
Quarter: 2010Q4

REPORT INFORMATION
  Report Type: 
  Country: None (occurrence: None)
  Receive Date: 20101122
  Receipt Date: 20101111
  Transmission Date: 20110411
  Serious: Yes (Hospitalization)
  Sender: FDA-Public Use
  Company Number: SE-TEVA-244665ISR

PATIENT
  Sex: Male

DRUGS (12)
  1. PREDNISOLONE [Suspect]
     Indication: PROSTATE CANCER METASTATIC
     Route: 048
     Dates: start: 20100218
  2. ABIRATERONE ACETATE/PLACEBO [Suspect]
     Indication: PROSTATE CANCER METASTATIC
     Route: 048
     Dates: start: 20100218, end: 20100712
  3. FUROSEMIDE [Concomitant]
     Indication: CARDIAC FAILURE CONGESTIVE
     Route: 048
     Dates: start: 20090401
  4. PARACETAMOL [Concomitant]
     Indication: ARTHRALGIA
     Route: 048
     Dates: start: 19950101
  5. AMILORIDE HYDROCHLORIDE [Concomitant]
     Indication: HYPERTENSION
     Route: 048
     Dates: start: 20090201
  6. LEKOVIT CA [Concomitant]
     Indication: OSTEOPOROSIS PROPHYLAXIS
     Route: 048
     Dates: start: 20070111
  7. AMLODIPINE [Concomitant]
     Indication: HYPERTENSION
     Route: 048
     Dates: start: 20100217
  8. LEUPRORELIN [Concomitant]
     Indication: HORMONE THERAPY
     Route: 058
     Dates: start: 20090910
  9. LEUPRORELIN [Concomitant]
     Indication: PROSTATE CANCER
     Dates: start: 20100218
  10. ANACIN [Concomitant]
     Indication: BACK PAIN
     Route: 048
     Dates: start: 20100201
  11. ANACIN [Concomitant]
     Indication: ARTHRALGIA
  12. LOSARTAN POTASSIUM [Concomitant]
     Route: 048
     Dates: start: 19920101

REACTIONS (3)
  - BRONCHOPNEUMONIA [None]
  - CANCER PAIN [None]
  - SPINAL FRACTURE [None]
